FAERS Safety Report 9618972 (Version 3)
Quarter: 2013Q4

REPORT INFORMATION
  Report Type: Spontaneous
  Country: US (occurrence: US)
  Receive Date: 20131014
  Receipt Date: 20131104
  Transmission Date: 20140711
  Serious: Yes (Death)
  Sender: FDA-Public Use
  Company Number: US-PFIZER INC-2013293229

PATIENT
  Age: 35 Year
  Sex: Male

DRUGS (2)
  1. SUTENT [Suspect]
     Indication: OSTEOSARCOMA METASTATIC
     Dosage: 50 MG, DAILY
     Dates: start: 201309
  2. SUTENT [Suspect]
     Indication: METASTATIC RENAL CELL CARCINOMA

REACTIONS (4)
  - Disease progression [Fatal]
  - Metastatic renal cell carcinoma [Fatal]
  - Disease progression [Fatal]
  - Osteosarcoma metastatic [Fatal]
